FAERS Safety Report 8883819 (Version 1)
Quarter: 2012Q4

REPORT INFORMATION
  Report Type: 
  Country: US (occurrence: US)
  Receive Date: 20121102
  Receipt Date: 20121102
  Transmission Date: 20130627
  Serious: No
  Sender: FDA-Public Use
  Company Number: US-ASTRAZENECA-2012SE07800

PATIENT
  Age: 54 Year
  Sex: Female
  Weight: 58.1 kg

DRUGS (4)
  1. CRESTOR [Suspect]
     Indication: HYPERLIPIDAEMIA
     Route: 048
     Dates: start: 20100506, end: 20110201
  2. CRESTOR [Suspect]
     Indication: HYPERLIPIDAEMIA
     Route: 048
     Dates: start: 20110201
  3. ZOLOFT [Concomitant]
     Indication: DEPRESSION
  4. ABILIFY [Concomitant]
     Indication: DEPRESSION

REACTIONS (1)
  - Hypercholesterolaemia [Recovering/Resolving]
